FAERS Safety Report 4314014-3 (Version None)
Quarter: 2004Q1

REPORT INFORMATION
  Report Type: 
  Country: None (occurrence: None)
  Receive Date: 20040305
  Receipt Date: 20040225
  Transmission Date: 20041129
  Serious: Yes (Other)
  Sender: FDA-Public Use
  Company Number: 2004-02-0309

PATIENT
  Age: 59 Year
  Sex: Female
  Weight: 58.9676 kg

DRUGS (3)
  1. GARASONE (GENTAMICIN SULFATE/BETAMETHASONE SOD PHOSP  OPHTHALMIC OINTM [Suspect]
     Indication: CONJUNCTIVITIS
     Dosage: RIGHT EYE TID OPHTHALMIC
     Route: 047
     Dates: start: 20020301
  2. LIVOSTIN [Suspect]
     Dosage: OU TOP-OPHTHALM
  3. BLEPHAMIDE [Suspect]
     Dosage: ON EYELIDS TOP-OPHTHALMI

REACTIONS (1)
  - RETINAL DEGENERATION [None]
